FAERS Safety Report 7902539-0 (Version None)
Quarter: 2011Q4

REPORT INFORMATION
  Report Type: 
  Country: None (occurrence: None)
  Receive Date: 20111108
  Receipt Date: 20101013
  Transmission Date: 20120403
  Serious: No
  Sender: FDA-Public Use
  Company Number: US-BAYER-201039446NA

PATIENT
  Age: 64 Year
  Sex: Female

DRUGS (1)
  1. CLIMARA [Suspect]
     Indication: OESTROGEN REPLACEMENT THERAPY
     Dosage: 100MCG/24HR
     Route: 062
     Dates: start: 20000101

REACTIONS (2)
  - SKIN EXFOLIATION [None]
  - RASH MACULAR [None]
